FAERS Safety Report 8333461-6 (Version None)
Quarter: 2012Q2

REPORT INFORMATION
  Report Type: 
  Country: None (occurrence: None)
  Receive Date: 20120503
  Receipt Date: 20120424
  Transmission Date: 20120825
  Serious: Yes (Life-Threatening, Hospitalization)
  Sender: FDA-Public Use
  Company Number: NL-NOVOPROD-350207

PATIENT
  Age: 48 Year
  Sex: Male
  Weight: 123 kg

DRUGS (5)
  1. SIMVASTATIN [Concomitant]
     Dosage: 40 MG, QD
  2. VICTOZA [Suspect]
     Indication: TYPE 2 DIABETES MELLITUS
     Dosage: 0.6 MG, QD
     Route: 065
     Dates: start: 20120130
  3. TOLBUTAMIDE [Concomitant]
     Dosage: 1000 MG, TID
  4. VICTOZA [Suspect]
     Dosage: 1.2 MG, QD
     Route: 065
     Dates: end: 20120310
  5. METFORMIN HCL [Concomitant]
     Dosage: 1000 MG, BID

REACTIONS (3)
  - NAUSEA [None]
  - CEREBROVASCULAR ACCIDENT [None]
  - DIZZINESS [None]
